FAERS Safety Report 25766864 (Version 1)
Quarter: 2025Q3

REPORT INFORMATION
  Report Type: Spontaneous
  Country: CN (occurrence: CN)
  Receive Date: 20250905
  Receipt Date: 20250905
  Transmission Date: 20251021
  Serious: Yes (Other)
  Sender: FRESENIUS KABI
  Company Number: CN-FreseniusKabi-FK202512192

PATIENT
  Age: 65 Year
  Sex: Female
  Weight: 41 kg

DRUGS (1)
  1. KABIVEN [Suspect]
     Active Substance: ALANINE\ARGININE\ASPARTIC ACID\CALCIUM CHLORIDE\DEXTROSE MONOHYDRATE\GLUTAMIC ACID\GLYCINE\HISTIDINE
     Indication: Nutritional supplementation
     Dosage: FOA-INJECTION
     Route: 041
     Dates: start: 20250813, end: 20250825

REACTIONS (2)
  - Cholestatic liver injury [Recovering/Resolving]
  - Liver function test abnormal [Recovering/Resolving]

NARRATIVE: CASE EVENT DATE: 20250823
